FAERS Safety Report 7722438-7 (Version None)
Quarter: 2011Q3

REPORT INFORMATION
  Report Type: 
  Country: None (occurrence: None)
  Receive Date: 20110825
  Receipt Date: 20110816
  Transmission Date: 20111222
  Serious: Yes (Disabling)
  Sender: FDA-Public Use
  Company Number: 15983257

PATIENT
  Age: 44 Year
  Sex: Female

DRUGS (5)
  1. EFFEXOR [Concomitant]
  2. WARFARIN SODIUM [Suspect]
     Indication: EMBOLISM
     Dosage: ORAL
     Route: 048
     Dates: start: 20110422
  3. ENOXAPARIN SODIUM [Suspect]
     Indication: EMBOLISM
     Dosage: 1345 MILLILITER, SC
     Route: 058
     Dates: start: 20110422, end: 20110502
  4. PLACEBO [Suspect]
     Indication: EMBOLISM
     Dates: start: 20110422
  5. APIXABAN [Suspect]
     Indication: EMBOLISM
     Dosage: 10 MILLIGRAM, ORAL
     Route: 048
     Dates: start: 20110422

REACTIONS (1)
  - ERYSIPELAS [None]
